FAERS Safety Report 5382347-8 (Version None)
Quarter: 2007Q2

REPORT INFORMATION
  Report Type: 
  Country: None (occurrence: None)
  Receive Date: 20070629
  Receipt Date: 20070129
  Transmission Date: 20071010
  Serious: Yes (Other)
  Sender: FDA-Public Use
  Company Number: US200702000794

PATIENT
  Age: 49 Year
  Sex: Male

DRUGS (3)
  1. HUMULIN N [Suspect]
     Indication: DIABETES MELLITUS
  2. HUMALOG [Suspect]
     Indication: DIABETES MELLITUS
  3. BYETTA [Concomitant]

REACTIONS (5)
  - BLOOD GLUCOSE INCREASED [None]
  - INJECTION SITE BRUISING [None]
  - NAUSEA [None]
  - SUDDEN HEARING LOSS [None]
  - VIRAL INFECTION [None]
